FAERS Safety Report 13878901 (Version 1)
Quarter: 2017Q3

REPORT INFORMATION
  Report Type: Spontaneous
  Country: US (occurrence: US)
  Receive Date: 20170817
  Receipt Date: 20170817
  Transmission Date: 20171127
  Serious: No
  Sender: FDA-Public Use
  Company Number: US-SYNERGY PHARMACEUTICALS INC-US-2017SNG000089

PATIENT
  Sex: Female
  Weight: 54.42 kg

DRUGS (3)
  1. TRULANCE [Suspect]
     Active Substance: PLECANATIDE
     Indication: CONSTIPATION
     Dosage: 3 MG, QD
     Route: 048
     Dates: start: 20170530
  2. DESIPRAMINE [Concomitant]
     Active Substance: DESIPRAMINE
     Indication: ABDOMINAL PAIN UPPER
     Dosage: 25 MG, QD
     Dates: start: 201705
  3. TRULANCE [Suspect]
     Active Substance: PLECANATIDE
     Indication: ABDOMINAL PAIN

REACTIONS (2)
  - Constipation [Not Recovered/Not Resolved]
  - Product use in unapproved indication [Not Recovered/Not Resolved]
